FAERS Safety Report 23028128 (Version 1)
Quarter: 2023Q4

REPORT INFORMATION
  Report Type: Spontaneous
  Country: BE (occurrence: BE)
  Receive Date: 20231004
  Receipt Date: 20231004
  Transmission Date: 20240109
  Serious: Yes (Other)
  Sender: FDA-Public Use
  Company Number: BE-BAXTER-2023BAX032326

PATIENT

DRUGS (5)
  1. ETOPOSIDE [Suspect]
     Active Substance: ETOPOSIDE
     Dosage: UNK, AS A PART OF CHOEP REGIMEN
     Route: 065
     Dates: start: 20230503, end: 20230728
  2. DOXORUBICIN [Suspect]
     Active Substance: DOXORUBICIN
     Dosage: UNK, AS A PART OF CHOEP REGIMEN
     Route: 065
     Dates: start: 20230503, end: 20230728
  3. CYCLOPHOSPHAMIDE [Suspect]
     Active Substance: CYCLOPHOSPHAMIDE
     Dosage: UNK, AS A PART OF CHOEP REGIMEN
     Route: 065
     Dates: start: 20230503, end: 20230728
  4. VINCRISTINE [Suspect]
     Active Substance: VINCRISTINE
     Dosage: UNK, AS A PART OF CHOEP REGIMEN
     Route: 065
     Dates: start: 20230503, end: 20230728
  5. PREDNISONE [Suspect]
     Active Substance: PREDNISONE
     Dosage: UNK, AS A PART OF CHOEP REGIMEN
     Route: 065
     Dates: start: 20230503, end: 20230728

REACTIONS (1)
  - Refractory cancer [Unknown]
